FAERS Safety Report 25236528 (Version 3)
Quarter: 2025Q3

REPORT INFORMATION
  Report Type: Spontaneous
  Country: US (occurrence: US)
  Receive Date: 20250424
  Receipt Date: 20250818
  Transmission Date: 20251020
  Serious: No
  Sender: PFIZER
  Company Number: US-PFIZER INC-PV202500048336

PATIENT
  Age: 76 Year
  Sex: Female

DRUGS (4)
  1. IBRANCE [Suspect]
     Active Substance: PALBOCICLIB
  2. SIMETHICONE (DIMETHICONE) [Concomitant]
     Active Substance: DIMETHICONE
     Indication: Dyspepsia
  3. LISINOPRIL [Concomitant]
     Active Substance: LISINOPRIL
     Indication: Hypertension
  4. LISINOPRIL [Concomitant]
     Active Substance: LISINOPRIL

REACTIONS (10)
  - Therapeutic response unexpected [Unknown]
  - Vomiting [Unknown]
  - Full blood count decreased [Unknown]
  - Alopecia [Unknown]
  - Fatigue [Unknown]
  - Platelet count decreased [Unknown]
  - Dizziness [Unknown]
  - Diarrhoea [Unknown]
  - Hypotension [Unknown]
  - Weight decreased [Unknown]
